FAERS Safety Report 11745773 (Version 2)
Quarter: 2015Q4

REPORT INFORMATION
  Report Type: Spontaneous
  Country: US (occurrence: US)
  Receive Date: 20151117
  Receipt Date: 20151119
  Transmission Date: 20160304
  Serious: Yes (Hospitalization)
  Sender: FDA-Public Use
  Company Number: US-SA-2015SA177276

PATIENT
  Age: 23 Year
  Sex: Female

DRUGS (1)
  1. ALLEGRA [Suspect]
     Active Substance: FEXOFENADINE HYDROCHLORIDE
     Indication: ANAPHYLACTIC REACTION
     Dosage: START DATE: 2 MONTHS AGO
     Route: 048

REACTIONS (2)
  - Drug prescribing error [Unknown]
  - Unevaluable event [Unknown]
